FAERS Safety Report 7071558-1 (Version None)
Quarter: 2010Q4

REPORT INFORMATION
  Report Type: 
  Country: None (occurrence: None)
  Receive Date: 20101029
  Receipt Date: 20090922
  Transmission Date: 20110411
  Serious: No
  Sender: FDA-Public Use
  Company Number: A0808493A

PATIENT
  Age: 64 Year
  Sex: Male

DRUGS (4)
  1. ADVAIR DISKUS 100/50 [Suspect]
     Indication: CHRONIC OBSTRUCTIVE PULMONARY DISEASE
     Dosage: 1PUFF TWICE PER DAY
     Route: 055
     Dates: start: 20081201
  2. SPIRIVA [Concomitant]
  3. PERCOCET [Concomitant]
  4. SLEEPING PILLS [Concomitant]

REACTIONS (6)
  - COUGH [None]
  - DECREASED APPETITE [None]
  - DRY THROAT [None]
  - DYSGEUSIA [None]
  - DYSPHONIA [None]
  - WEIGHT DECREASED [None]
